FAERS Safety Report 16708998 (Version 1)
Quarter: 2019Q3

REPORT INFORMATION
  Report Type: Report from Study
  Country: DE (occurrence: DE)
  Receive Date: 20190816
  Receipt Date: 20190816
  Transmission Date: 20191004
  Serious: Yes (Hospitalization)
  Sender: FDA-Public Use
  Company Number: DE-ROCHE-2380110

PATIENT
  Age: 58 Year
  Sex: Female
  Weight: 47 kg

DRUGS (7)
  1. LEUCOVORIN [FOLINIC ACID] [Suspect]
     Active Substance: LEUCOVORIN
     Indication: GASTRIC CANCER
     Dosage: LAST DOSE OF 292 MG PRIOR TO EVENT ONSET 26/JUL/2019.?DAY 1 Q2W: 200 MG/M2 IV OVER 1 HOUR
     Route: 042
  2. ATEZOLIZUMAB. [Suspect]
     Active Substance: ATEZOLIZUMAB
     Indication: GASTRIC CANCER
     Dosage: LAST DOSE OF PRIOR TO EVENT ONSET 26/JUL/2019.?DAY 1 Q2W: 840 MG IV OVER 1 HOUR (4 CYCLES PERIOPERAT
     Route: 041
  3. DOCETAXEL. [Suspect]
     Active Substance: DOCETAXEL
     Indication: GASTRIC CANCER
     Dosage: DAY 1 Q2W: 50 MG/M2 IV OVER 1 HOUR?LAST DOSE OF 73 MG PRIOR TO EVENT ONSET 26/JUL/2019.
     Route: 042
  4. FENISTIL [Concomitant]
     Active Substance: DIMETHINDENE
     Dosage: AMPUOLE
     Route: 042
  5. FLUOROURACIL. [Suspect]
     Active Substance: FLUOROURACIL
     Indication: GASTRIC CANCER
     Dosage: LAST DOSE OF 3796 MG PRIOR TO EVENT ONSET 26/JUL/2019.?DAY 1 Q2W: 2600 MG/M2 IV OVER 24 HOURS
     Route: 042
  6. SOLU DECORTIN H [Concomitant]
     Active Substance: PREDNISOLONE SODIUM SUCCINATE
     Route: 042
  7. OXALIPLATIN. [Suspect]
     Active Substance: OXALIPLATIN
     Indication: GASTRIC CANCER
     Dosage: LAST DOSE OF 124.10 MG PRIOR TO EVENT ONSET 26/JUL/2019.?DAY 1 Q2W: 85 MG/M2 IV OVER 2 HOURS
     Route: 042

REACTIONS (1)
  - Hypersensitivity [Recovered/Resolved]

NARRATIVE: CASE EVENT DATE: 20190809
